FAERS Safety Report 14326484 (Version 2)
Quarter: 2018Q4

REPORT INFORMATION
  Report Type: Report from Study
  Country: None (occurrence: BR)
  Receive Date: 20171227
  Receipt Date: 20181211
  Transmission Date: 20190204
  Serious: Yes (Other)
  Sender: FDA-Public Use
  Company Number: BR-ABBVIE-17K-020-2203235-00

PATIENT
  Age: 59 Year
  Sex: Female
  Weight: 71 kg

DRUGS (7)
  1. HUMIRA [Suspect]
     Active Substance: ADALIMUMAB
     Route: 058
  2. METHOTREXATE. [Concomitant]
     Active Substance: METHOTREXATE
     Indication: RHEUMATOID ARTHRITIS
  3. HUMIRA [Suspect]
     Active Substance: ADALIMUMAB
     Indication: RHEUMATOID ARTHRITIS
     Route: 058
     Dates: start: 20150101
  4. MAGNEN B6 [Concomitant]
     Active Substance: MAGNESIUM\PYRIDOXINE
     Indication: MUSCLE SPASMS
  5. CORUS [Concomitant]
     Active Substance: LOSARTAN POTASSIUM
     Indication: HYPERTENSION
  6. MAGNEN B6 [Concomitant]
     Active Substance: MAGNESIUM\PYRIDOXINE
     Indication: PAIN
  7. NEBLOCK [Concomitant]
     Active Substance: NEBIVOLOL HYDROCHLORIDE
     Indication: HYPERTENSION

REACTIONS (12)
  - Exostosis [Recovered/Resolved]
  - Foot deformity [Recovering/Resolving]
  - Malaise [Recovering/Resolving]
  - Eye irritation [Recovering/Resolving]
  - Osteoarthritis [Unknown]
  - Pain [Recovering/Resolving]
  - Pain [Recovered/Resolved]
  - Erythema [Recovering/Resolving]
  - Sneezing [Recovering/Resolving]
  - Pain [Recovering/Resolving]
  - Foot deformity [Recovering/Resolving]
  - Nasal pruritus [Recovering/Resolving]

NARRATIVE: CASE EVENT DATE: 2015
